FAERS Safety Report 5468708-7 (Version None)
Quarter: 2007Q3

REPORT INFORMATION
  Report Type: 
  Country: None (occurrence: None)
  Receive Date: 20070926
  Receipt Date: 20070914
  Transmission Date: 20080115
  Serious: Yes (Other)
  Sender: FDA-Public Use
  Company Number: FR-PFIZER INC-2007077733

PATIENT
  Age: 84 Year
  Sex: Female

DRUGS (10)
  1. LYRICA [Suspect]
     Indication: NEURALGIA
     Dates: start: 20070601, end: 20070914
  2. GLIMEPIRIDE [Concomitant]
  3. ACARBOSE [Concomitant]
  4. ATORVASTATIN CALCIUM [Concomitant]
  5. ASPIRIN [Concomitant]
  6. ALENDRONIC ACID/COLECALCIFEROL [Concomitant]
  7. CALCIUM CARBONATE [Concomitant]
  8. TRIMETAZIDINE DIHYDROCHLORIDE [Concomitant]
  9. VALACYCLOVIR HCL [Concomitant]
  10. DEXTROPROPOXYPHENE HYDROCHLORIDE [Concomitant]

REACTIONS (3)
  - DIZZINESS [None]
  - FLUSHING [None]
  - OEDEMA PERIPHERAL [None]
